FAERS Safety Report 4380349-1 (Version None)
Quarter: 2004Q2

REPORT INFORMATION
  Report Type: 
  Country: None (occurrence: None)
  Receive Date: 20040616
  Receipt Date: 20040616
  Transmission Date: 20050107
  Serious: No
  Sender: FDA-Public Use
  Company Number: None

PATIENT
  Sex: Female
  Weight: 82 kg

DRUGS (3)
  1. TAXOTERE [Suspect]
     Dates: start: 20040318
  2. ADRIAMYCIN PFS [Suspect]
     Dates: start: 20040318
  3. CYTOXAN [Suspect]
     Dates: start: 20040318

REACTIONS (2)
  - CHEST PAIN [None]
  - DYSPNOEA [None]
